FAERS Safety Report 23168039 (Version 1)
Quarter: 2023Q4

REPORT INFORMATION
  Report Type: Spontaneous
  Country: GB (occurrence: GB)
  Receive Date: 20231109
  Receipt Date: 20231109
  Transmission Date: 20240109
  Serious: Yes (Other)
  Sender: FDA-Public Use
  Company Number: GB-BIOGEN-2023BI01235281

PATIENT
  Sex: Male

DRUGS (1)
  1. DALFAMPRIDINE [Suspect]
     Active Substance: DALFAMPRIDINE
     Indication: Multiple sclerosis
     Route: 050
     Dates: start: 2021

REACTIONS (4)
  - Sternal fracture [Unknown]
  - Scapula fracture [Unknown]
  - Eye injury [Unknown]
  - Tooth injury [Unknown]
